FAERS Safety Report 8530026-8 (Version None)
Quarter: 2012Q3

REPORT INFORMATION
  Report Type: 
  Country: None (occurrence: None)
  Receive Date: 20120723
  Receipt Date: 20120717
  Transmission Date: 20120928
  Serious: Yes (Other)
  Sender: FDA-Public Use
  Company Number: PHHY2012FR062468

PATIENT
  Sex: Male

DRUGS (3)
  1. TASIGNA [Suspect]
     Indication: CHRONIC MYELOID LEUKAEMIA
     Dosage: 400 MG, BID
     Route: 048
     Dates: start: 20100409
  2. TASIGNA [Suspect]
     Dosage: 400 MG, DAILY
     Route: 048
  3. SILODOSIN [Concomitant]
     Indication: DYSURIA
     Dosage: 8 MG, DAILY
     Route: 048
     Dates: start: 20120412

REACTIONS (3)
  - CAROTID ARTERIOSCLEROSIS [None]
  - ARTERIOSCLEROSIS [None]
  - ERECTILE DYSFUNCTION [None]
